FAERS Safety Report 15103384 (Version 3)
Quarter: 2018Q4

REPORT INFORMATION
  Report Type: Spontaneous
  Country: US (occurrence: US)
  Receive Date: 20180703
  Receipt Date: 20181218
  Transmission Date: 20190204
  Serious: Yes (Hospitalization, Disabling)
  Sender: FDA-Public Use
  Company Number: US-OTSUKA-2018_017752

PATIENT
  Sex: Male

DRUGS (5)
  1. ABILIFY [Suspect]
     Active Substance: ARIPIPRAZOLE
     Indication: BIPOLAR DISORDER
     Dosage: 15 MG, QD
     Route: 065
  2. ABILIFY [Suspect]
     Active Substance: ARIPIPRAZOLE
     Indication: PSYCHOTIC DISORDER
     Dosage: 20 MG, QD
     Route: 065
  3. ABILIFY [Suspect]
     Active Substance: ARIPIPRAZOLE
     Dosage: 30 MG, QD
     Route: 065
     Dates: end: 201604
  4. ABILIFY [Suspect]
     Active Substance: ARIPIPRAZOLE
     Indication: SCHIZOPHRENIA
     Dosage: 10 MG, QD
     Route: 065
  5. ARIPIPRAZOLE. [Concomitant]
     Active Substance: ARIPIPRAZOLE
     Indication: PRODUCT USED FOR UNKNOWN INDICATION
     Dosage: UNK
     Route: 065
     Dates: end: 20160319

REACTIONS (18)
  - Schizophrenia [Unknown]
  - Divorced [Unknown]
  - Disability [Unknown]
  - Pain [Unknown]
  - Loss of employment [Unknown]
  - Product use in unapproved indication [Unknown]
  - Schizoaffective disorder bipolar type [Unknown]
  - Gambling disorder [Recovered/Resolved]
  - Injury [Unknown]
  - Compulsive shopping [Recovered/Resolved]
  - Anhedonia [Unknown]
  - Emotional distress [Unknown]
  - Anxiety [Unknown]
  - Condition aggravated [Recovered/Resolved]
  - Mental disorder [Unknown]
  - Compulsive sexual behaviour [Recovered/Resolved]
  - Economic problem [Unknown]
  - Condition aggravated [Unknown]

NARRATIVE: CASE EVENT DATE: 200505
